FAERS Safety Report 10261321 (Version 1)
Quarter: 2014Q2

REPORT INFORMATION
  Report Type: Spontaneous
  Country: DK (occurrence: DK)
  Receive Date: 20140626
  Receipt Date: 20140626
  Transmission Date: 20141212
  Serious: Yes (Other)
  Sender: FDA-Public Use
  Company Number: DK-GE HEALTHCARE MEDICAL DIAGNOSTICS-OMPQ-PR-1406L-0653

PATIENT
  Sex: 0

DRUGS (3)
  1. OMNIPAQUE [Suspect]
     Indication: MYOCARDIAL ISCHAEMIA
     Route: 042
  2. OMNIPAQUE [Suspect]
     Indication: DIAGNOSTIC PROCEDURE
  3. ADENOSINE [Suspect]

REACTIONS (1)
  - Atrioventricular block complete [Unknown]
